FAERS Safety Report 7470832-4 (Version None)
Quarter: 2011Q2

REPORT INFORMATION
  Report Type: 
  Country: None (occurrence: None)
  Receive Date: 20110502
  Receipt Date: 20110428
  Transmission Date: 20111010
  Serious: Yes (Other)
  Sender: FDA-Public Use
  Company Number: USA/USA/11/0018123

PATIENT
  Age: 46 Year
  Sex: Female
  Weight: 56.246 kg

DRUGS (2)
  1. CIPROFLOXACIN [Suspect]
     Indication: SINUSITIS
     Dosage: 500 MG, 2 IN 1 D, ORAL
     Route: 048
     Dates: start: 20110422, end: 20110425
  2. AMOXICILLIN [Concomitant]

REACTIONS (4)
  - ARTHRALGIA [None]
  - DYSSTASIA [None]
  - MYALGIA [None]
  - CELLULITIS [None]
